FAERS Safety Report 25973593 (Version 1)
Quarter: 2025Q4

REPORT INFORMATION
  Report Type: Spontaneous
  Country: CN (occurrence: CN)
  Receive Date: 20251029
  Receipt Date: 20251029
  Transmission Date: 20260118
  Serious: Yes (Other)
  Sender: ROCHE
  Company Number: CN-ROCHE-10000417894

PATIENT
  Age: 27 Year
  Sex: Female

DRUGS (4)
  1. OSELTAMIVIR PHOSPHATE [Suspect]
     Active Substance: OSELTAMIVIR PHOSPHATE
     Indication: Upper respiratory tract infection
     Route: 048
     Dates: start: 20251008, end: 20251012
  2. OSELTAMIVIR PHOSPHATE [Suspect]
     Active Substance: OSELTAMIVIR PHOSPHATE
     Indication: Influenza
  3. CHLORPHENIRAMINE MALEATE\DEXTROMETHORPHAN HYDROBROMIDE\PSEUDOEPHEDRINE [Concomitant]
     Active Substance: CHLORPHENIRAMINE MALEATE\DEXTROMETHORPHAN HYDROBROMIDE\PSEUDOEPHEDRINE HYDROCHLORIDE
     Indication: Influenza
     Route: 048
     Dates: start: 20251008, end: 20251012
  4. JU HONG TAN KE [Concomitant]
     Indication: Tracheitis
     Route: 048
     Dates: start: 20251008, end: 20251012

REACTIONS (3)
  - Gingivitis [Recovering/Resolving]
  - Insomnia [Recovering/Resolving]
  - Decreased appetite [Recovering/Resolving]

NARRATIVE: CASE EVENT DATE: 20251010
